FAERS Safety Report 21858673 (Version 1)
Quarter: 2023Q1

REPORT INFORMATION
  Report Type: Spontaneous
  Country: US (occurrence: None)
  Receive Date: 20230112
  Receipt Date: 20230112
  Transmission Date: 20230418
  Serious: Yes (Other)
  Sender: FDA-Public Use
  Company Number: None

PATIENT
  Sex: Female

DRUGS (5)
  1. EUFLEXXA [Suspect]
     Active Substance: HYALURONATE SODIUM
     Indication: Osteoarthritis
     Dosage: OTHER QUANTITY : 20 MG/2ML;?OTHER FREQUENCY : ONCE WK FOR 3 WKS;?
     Route: 014
     Dates: start: 20170406
  2. EUFLEXXA [Suspect]
     Active Substance: HYALURONATE SODIUM
     Dosage: OTHER FREQUENCY : ONCE WK FOR 3 WKS;?
     Route: 014
  3. CLARITIN-D NOS [Concomitant]
     Active Substance: LORATADINE\PSEUDOEPHEDRINE SULFATE
  4. MELOXICAM [Concomitant]
     Active Substance: MELOXICAM
  5. MULTIPLE VIT [Concomitant]

REACTIONS (1)
  - Cancer surgery [None]
